FAERS Safety Report 16963283 (Version 1)
Quarter: 2019Q4

REPORT INFORMATION
  Report Type: Report from Study
  Country: CA (occurrence: CA)
  Receive Date: 20191025
  Receipt Date: 20191025
  Transmission Date: 20200122
  Serious: Yes (Other)
  Sender: FDA-Public Use
  Company Number: CA-HLSUS-2019-CA-001409

PATIENT
  Age: 43 Year
  Sex: Female
  Weight: 80 kg

DRUGS (1)
  1. CLOZARIL [Suspect]
     Active Substance: CLOZAPINE
     Route: 048
     Dates: start: 20111109

REACTIONS (3)
  - Sinus tachycardia [Unknown]
  - QRS axis abnormal [Unknown]
  - Electrocardiogram Q wave abnormal [Unknown]

NARRATIVE: CASE EVENT DATE: 20191010
